FAERS Safety Report 24270838 (Version 1)
Quarter: 2024Q3

REPORT INFORMATION
  Report Type: Spontaneous
  Country: US (occurrence: US)
  Receive Date: 20240831
  Receipt Date: 20240831
  Transmission Date: 20241017
  Serious: Yes (Other)
  Sender: TEVA
  Company Number: US-TEVA-VS-3237161

PATIENT
  Age: 56 Year
  Sex: Female

DRUGS (1)
  1. METHOTREXATE [Suspect]
     Active Substance: METHOTREXATE
     Indication: Product used for unknown indication
     Dosage: YELLOW
     Route: 065

REACTIONS (4)
  - Tibia fracture [Unknown]
  - Medial tibial stress syndrome [Unknown]
  - Joint swelling [Unknown]
  - Stress fracture [Unknown]

NARRATIVE: CASE EVENT DATE: 20240101
